FAERS Safety Report 12784784 (Version 1)
Quarter: 2016Q3

REPORT INFORMATION
  Report Type: Spontaneous
  Country: BR (occurrence: BR)
  Receive Date: 20160927
  Receipt Date: 20160927
  Transmission Date: 20161109
  Serious: Yes (Other)
  Sender: FDA-Public Use
  Company Number: BR-INCYTE CORPORATION-2016IN005956

PATIENT

DRUGS (2)
  1. JAKAFI [Suspect]
     Active Substance: RUXOLITINIB
     Indication: PRODUCT USED FOR UNKNOWN INDICATION
     Dosage: 25 MG, BID  FOR 15 DAYS
     Route: 065
  2. JAKAFI [Suspect]
     Active Substance: RUXOLITINIB
     Dosage: 5 MG, QD  FOR 3 MONTHS
     Route: 065

REACTIONS (6)
  - Platelet count increased [Unknown]
  - Amylase increased [Unknown]
  - Acute myeloid leukaemia [Unknown]
  - Diarrhoea [Unknown]
  - Lipase increased [Unknown]
  - Blood creatinine increased [Unknown]
